FAERS Safety Report 23998111 (Version 2)
Quarter: 2024Q3

REPORT INFORMATION
  Report Type: Spontaneous
  Country: DE (occurrence: DE)
  Receive Date: 20240621
  Receipt Date: 20240716
  Transmission Date: 20241017
  Serious: Yes (Other)
  Sender: LEO PHARM
  Company Number: DE-LEO Pharma-366808

PATIENT
  Sex: Male

DRUGS (1)
  1. ADBRY [Suspect]
     Active Substance: TRALOKINUMAB-LDRM
     Indication: Dermatitis atopic
     Dosage: NO POSOLOGY INFORMATION REPORTED.

REACTIONS (2)
  - Dermatitis exfoliative generalised [Unknown]
  - Therapeutic product effect incomplete [Unknown]
